FAERS Safety Report 9089317 (Version 1)
Quarter: 2013Q1

REPORT INFORMATION
  Report Type: Report from Study
  Country: US (occurrence: US)
  Receive Date: 20130201
  Receipt Date: 20130201
  Transmission Date: 20140127
  Serious: No
  Sender: FDA-Public Use
  Company Number: US-ABBOTT-13P-163-1030015-00

PATIENT
  Sex: Female
  Weight: 47.67 kg

DRUGS (7)
  1. HUMIRA PEN [Suspect]
     Indication: ANKYLOSING SPONDYLITIS
     Dates: start: 20121002, end: 20121213
  2. ALEVE [Concomitant]
     Indication: PAIN
  3. CALTRATE WITH VITAMIN D [Concomitant]
     Indication: MINERAL SUPPLEMENTATION
  4. LYRICA [Concomitant]
     Indication: PAIN
  5. MULTIVITAMIN [Concomitant]
     Indication: VITAMIN SUPPLEMENTATION
  6. NUCYNTA [Concomitant]
     Indication: PAIN
  7. VITAMIN D [Concomitant]
     Indication: VITAMIN SUPPLEMENTATION

REACTIONS (3)
  - Platelet count decreased [Not Recovered/Not Resolved]
  - White blood cell count decreased [Not Recovered/Not Resolved]
  - Drug ineffective [Not Recovered/Not Resolved]
